FAERS Safety Report 6783340-0 (Version None)
Quarter: 2010Q2

REPORT INFORMATION
  Report Type: 
  Country: None (occurrence: None)
  Receive Date: 20100622
  Receipt Date: 20100614
  Transmission Date: 20101027
  Serious: Yes (Hospitalization)
  Sender: FDA-Public Use
  Company Number: FR-KINGPHARMUSA00001-K201000745

PATIENT
  Age: 71 Year
  Sex: Male

DRUGS (3)
  1. ALTACE [Suspect]
     Indication: HYPERTENSION
     Dosage: 5 MG QD
     Dates: start: 20100516, end: 20100518
  2. FELODIPINE [Suspect]
     Indication: HYPERTENSION
     Dosage: 5 MG, QD
     Route: 048
     Dates: start: 20100516, end: 20100518
  3. PHYSIOTENS [Suspect]
     Indication: HYPERTENSION
     Dosage: 0.4MG, QAM
     Route: 048
     Dates: start: 20100515

REACTIONS (3)
  - ATRIAL FLUTTER [None]
  - PALPITATIONS [None]
  - VENTRICULAR TACHYCARDIA [None]
